FAERS Safety Report 5110118-6 (Version None)
Quarter: 2006Q3

REPORT INFORMATION
  Report Type: 
  Country: None (occurrence: None)
  Receive Date: 20060918
  Receipt Date: 20060913
  Transmission Date: 20061208
  Serious: Yes (Other)
  Sender: FDA-Public Use
  Company Number: 06-0115PO

PATIENT
  Age: 36 Year
  Sex: Female

DRUGS (1)
  1. MEFENAMIC ACID [Suspect]

REACTIONS (1)
  - PULMONARY HYPERTENSION [None]
